FAERS Safety Report 16379357 (Version 1)
Quarter: 2019Q2

REPORT INFORMATION
  Report Type: Report from Study
  Country: US (occurrence: US)
  Receive Date: 20190531
  Receipt Date: 20190531
  Transmission Date: 20190711
  Serious: No
  Sender: FDA-Public Use
  Company Number: PHEH2019US022917

PATIENT
  Sex: Female

DRUGS (2)
  1. COSENTYX [Suspect]
     Active Substance: SECUKINUMAB
     Indication: PSORIASIS
     Dosage: PATIENT STATED SHE ADMINISTERED 2 PENS SQ ONCE A WEEK FOR 5 WEEKS AND THEN SHE WAS INJECTING 2 PENS
     Route: 058
  2. COSENTYX [Suspect]
     Active Substance: SECUKINUMAB
     Indication: PSORIATIC ARTHROPATHY

REACTIONS (6)
  - Gastric disorder [Unknown]
  - Fatigue [Unknown]
  - Drug ineffective [Unknown]
  - Pain [Unknown]
  - Headache [Unknown]
  - Pruritus [Unknown]
